FAERS Safety Report 9751901 (Version 2)
Quarter: 2013Q4

REPORT INFORMATION
  Report Type: Spontaneous
  Country: FR (occurrence: FR)
  Receive Date: 20131213
  Receipt Date: 20131223
  Transmission Date: 20140711
  Serious: Yes (Hospitalization)
  Sender: FDA-Public Use
  Company Number: FR-JNJFOC-20131203179

PATIENT
  Age: 69 Year
  Sex: Female

DRUGS (9)
  1. CAELYX [Suspect]
     Indication: PLASMA CELL MYELOMA
     Dosage: D4, D11)
     Route: 042
     Dates: start: 20130801, end: 20130801
  2. VELCADE [Suspect]
     Indication: PLASMA CELL MYELOMA
     Route: 042
     Dates: start: 20130805
  3. VELCADE [Suspect]
     Indication: PLASMA CELL MYELOMA
     Route: 042
     Dates: start: 20130801
  4. VELCADE [Suspect]
     Indication: PLASMA CELL MYELOMA
     Dosage: D1, D4, D8, D11
     Route: 042
     Dates: start: 20130729
  5. INEXIUM [Concomitant]
     Route: 065
  6. LEVOTHYROX [Concomitant]
     Route: 065
  7. OXYCONTIN [Concomitant]
     Route: 065
  8. OXYNORM [Concomitant]
     Route: 065
  9. PRIMPERAN [Concomitant]
     Route: 065

REACTIONS (5)
  - Hepatocellular injury [Recovered/Resolved]
  - Cholestasis [Recovered/Resolved]
  - Transaminases increased [Recovered/Resolved]
  - Blood alkaline phosphatase increased [Recovered/Resolved]
  - Pneumonia [Unknown]
